FAERS Safety Report 7958843-3 (Version None)
Quarter: 2011Q4

REPORT INFORMATION
  Report Type: 
  Country: None (occurrence: None)
  Receive Date: 20111206
  Receipt Date: 20111124
  Transmission Date: 20120403
  Serious: Yes (Other)
  Sender: FDA-Public Use
  Company Number: MX-ELI_LILLY_AND_COMPANY-MX201111008577

PATIENT
  Age: 58 Year
  Sex: Female
  Weight: 57 kg

DRUGS (2)
  1. HUMALOG MIX 75/25 [Suspect]
     Indication: DIABETES MELLITUS
     Dosage: 35 IU, QD
     Route: 058
     Dates: start: 20060101
  2. ANTIHYPERTENSIVES [Concomitant]
     Indication: HYPERTENSION
     Dosage: UNK

REACTIONS (2)
  - MYOCARDIAL INFARCTION [None]
  - BLOOD GLUCOSE INCREASED [None]
